FAERS Safety Report 15064762 (Version 2)
Quarter: 2018Q3

REPORT INFORMATION
  Report Type: Report from Study
  Country: US (occurrence: US)
  Receive Date: 20180625
  Receipt Date: 20180702
  Transmission Date: 20181010
  Serious: Yes (Hospitalization)
  Sender: FDA-Public Use
  Company Number: US-ALEXION PHARMACEUTICALS INC.-A201807927

PATIENT
  Sex: Male

DRUGS (1)
  1. SOLIRIS [Suspect]
     Active Substance: ECULIZUMAB
     Indication: PRODUCT USED FOR UNKNOWN INDICATION
     Route: 065

REACTIONS (7)
  - Condition aggravated [Unknown]
  - Pain in jaw [Unknown]
  - Speech disorder [Unknown]
  - Mastication disorder [Not Recovered/Not Resolved]
  - Dysphagia [Recovered/Resolved]
  - Eating disorder [Unknown]
  - Fatigue [Unknown]
